FAERS Safety Report 8876482 (Version 2)
Quarter: 2012Q4

REPORT INFORMATION
  Report Type: 
  Country: US (occurrence: US)
  Receive Date: 20121023
  Receipt Date: 20121107
  Transmission Date: 20130627
  Serious: Yes (Hospitalization)
  Sender: FDA-Public Use
  Company Number: US-ASTELLAS-2012US005637

PATIENT
  Age: 48 Year
  Sex: Female
  Weight: 61 kg

DRUGS (2)
  1. PROGRAF [Suspect]
     Indication: RENAL TRANSPLANT
     Dosage: 3 mg, bid
     Route: 048
     Dates: start: 20060701
  2. PROGRAF [Suspect]
     Dosage: 4 mg in am and 4 mg in pm, bid
     Route: 048

REACTIONS (3)
  - Hospitalisation [Unknown]
  - Pancreatitis [Recovering/Resolving]
  - Pancreatic pseudocyst [Unknown]
